FAERS Safety Report 9287062 (Version 3)
Quarter: 2013Q2

REPORT INFORMATION
  Report Type: Spontaneous
  Country: US (occurrence: None)
  Receive Date: 20130508
  Receipt Date: 20130626
  Transmission Date: 20140414
  Serious: Yes (Hospitalization)
  Sender: FDA-Public Use
  Company Number: UTC-032026

PATIENT
  Age: 65 Year
  Sex: Female
  Weight: 109.1 kg

DRUGS (2)
  1. TYVASO [Suspect]
     Indication: COR PULMONALE CHRONIC
     Dosage: 18 TO 54 MICROGRAMS ( 4 IN 1 D), INHALATION
     Route: 055
     Dates: start: 20130214
  2. REVATIO [Concomitant]

REACTIONS (7)
  - Abdominal pain upper [None]
  - Diarrhoea [None]
  - Gastric disorder [None]
  - Kidney infection [None]
  - Increased upper airway secretion [None]
  - Headache [None]
  - Cough [None]
